FAERS Safety Report 9165664 (Version 1)
Quarter: 2013Q1

REPORT INFORMATION
  Report Type: Not Available
  Country: FR (occurrence: FR)
  Receive Date: 20130315
  Receipt Date: 20130315
  Transmission Date: 20140127
  Serious: Yes (Hospitalization)
  Sender: FDA-Public Use
  Company Number: FR-ASTELLAS-2013EU002221

PATIENT
  Sex: Female

DRUGS (12)
  1. PROGRAF [Suspect]
     Indication: ORGAN TRANSPLANT
     Dosage: 2.5 MG, BID
     Route: 065
     Dates: start: 20121211
  2. PROGRAF [Suspect]
     Dosage: 2 MG, BID
     Route: 065
     Dates: start: 20130122
  3. PROGRAF [Suspect]
     Dosage: 4.5 MG, BID
     Route: 065
     Dates: start: 20130123
  4. PROGRAF [Suspect]
     Dosage: 2 MG, BID
     Route: 065
     Dates: start: 20130129
  5. PROGRAF [Suspect]
     Dosage: 1 MG, BID
     Route: 065
     Dates: start: 20130130
  6. CORTANCYL [Suspect]
     Indication: ORGAN TRANSPLANT
     Dosage: UNK
     Route: 065
  7. ESOMEPRAZOLE [Suspect]
     Dosage: UNK
     Route: 065
  8. TAHOR [Suspect]
     Dosage: UNK
     Route: 065
  9. CELLCEPT                           /01275102/ [Concomitant]
     Dosage: 250 MG, BID
     Route: 065
  10. AMLODIPINE [Concomitant]
     Dosage: 5 MG, UID/QD
     Route: 065
  11. CREON [Concomitant]
     Dosage: 5 UNK, QID
     Route: 065
  12. LOPERAMIDE [Concomitant]
     Dosage: UNK
     Route: 065

REACTIONS (5)
  - Overdose [Recovered/Resolved]
  - Vomiting [Recovered/Resolved]
  - Nausea [Recovered/Resolved]
  - Headache [Recovered/Resolved]
  - Decreased appetite [Recovered/Resolved]
